FAERS Safety Report 13446831 (Version 1)
Quarter: 2017Q2

REPORT INFORMATION
  Report Type: Spontaneous
  Country: US (occurrence: US)
  Receive Date: 20170414
  Receipt Date: 20170414
  Transmission Date: 20170830
  Serious: Yes (Disabling, Other)
  Sender: FDA-Public Use
  Company Number: None

PATIENT
  Sex: Male
  Weight: 67.5 kg

DRUGS (2)
  1. METHAMPHETAMINE 5 MG [Suspect]
     Active Substance: METHAMPHETAMINE
     Indication: ATTENTION DEFICIT/HYPERACTIVITY DISORDER
     Route: 048
     Dates: start: 20160401, end: 20170201
  2. TYLENOL [Concomitant]
     Active Substance: ACETAMINOPHEN

REACTIONS (5)
  - Bedridden [None]
  - Loss of personal independence in daily activities [None]
  - Product quality issue [None]
  - Depression [None]
  - Drug effect decreased [None]
